FAERS Safety Report 6066876-X (Version None)
Quarter: 2009Q1

REPORT INFORMATION
  Report Type: 
  Country: None (occurrence: None)
  Receive Date: 20090205
  Receipt Date: 20080908
  Transmission Date: 20090719
  Serious: No
  Sender: FDA-Public Use
  Company Number: US-ABBOTT-08P-163-0475194-00

PATIENT
  Sex: Female
  Weight: 62.198 kg

DRUGS (3)
  1. VICODIN [Suspect]
     Indication: ARTHRALGIA
     Route: 048
     Dates: start: 20080323, end: 20080323
  2. CELECOXIB [Concomitant]
     Indication: CROHN'S DISEASE
     Route: 048
  3. MESALAZINE [Concomitant]
     Indication: CROHN'S DISEASE
     Dosage: SEVERAL PILLS DAILY
     Route: 048

REACTIONS (1)
  - HALLUCINATION [None]
